FAERS Safety Report 6398589-9 (Version None)
Quarter: 2009Q4

REPORT INFORMATION
  Report Type: 
  Country: None (occurrence: None)
  Receive Date: 20091007
  Receipt Date: 20090917
  Transmission Date: 20100525
  Serious: No
  Sender: FDA-Public Use
  Company Number: ACTA012528

PATIENT
  Age: 25 Year
  Sex: Female

DRUGS (1)
  1. NEOTIGASON (ACITRETIN) [Suspect]
     Indication: PSORIASIS
     Dosage: 25 MG MILLIGRAM(S), DOSAGE 1, INTERVAL 1 DAY, ORAL
     Route: 048
     Dates: start: 20070101

REACTIONS (3)
  - ALCOHOL USE [None]
  - DRUG EXPOSURE BEFORE PREGNANCY [None]
  - PREGNANCY ON CONTRACEPTIVE [None]
